FAERS Safety Report 14268482 (Version 3)
Quarter: 2018Q3

REPORT INFORMATION
  Report Type: Spontaneous
  Country: JP (occurrence: JP)
  Receive Date: 20171211
  Receipt Date: 20180726
  Transmission Date: 20181010
  Serious: Yes (Hospitalization, Other)
  Sender: FDA-Public Use
  Company Number: JP-GLAXOSMITHKLINE-JP2017JPN187935

PATIENT
  Age: 67 Year
  Sex: Female

DRUGS (4)
  1. METFORMIN HYDROCHLORIDE. [Concomitant]
     Active Substance: METFORMIN HYDROCHLORIDE
     Dosage: 1000 MG, 1D
  2. VALTREX [Suspect]
     Active Substance: VALACYCLOVIR HYDROCHLORIDE
     Indication: HERPES ZOSTER OTICUS
     Dosage: 1000 MG, TID
     Route: 048
     Dates: start: 20171126
  3. SITAGLIPTIN PHOSPHATE HYDRATE [Concomitant]
     Active Substance: SITAGLIPTIN PHOSPHATE
     Dosage: 50 MG, 1D
  4. SOLU?CORTEF [Concomitant]
     Active Substance: HYDROCORTISONE SODIUM SUCCINATE
     Indication: HERPES ZOSTER OTICUS
     Dosage: 300 MG, 1D
     Route: 042
     Dates: start: 20171126

REACTIONS (7)
  - Altered state of consciousness [Recovering/Resolving]
  - Acute kidney injury [Recovering/Resolving]
  - Dyslalia [Unknown]
  - Pneumonia aspiration [Unknown]
  - Toxic encephalopathy [Recovering/Resolving]
  - Dysarthria [Unknown]
  - Nystagmus [Unknown]

NARRATIVE: CASE EVENT DATE: 2017
